FAERS Safety Report 9406453 (Version 3)
Quarter: 2013Q3

REPORT INFORMATION
  Report Type: Spontaneous
  Country: JP (occurrence: JP)
  Receive Date: 20130718
  Receipt Date: 20130903
  Transmission Date: 20140515
  Serious: Yes (Hospitalization)
  Sender: FDA-Public Use
  Company Number: JP-009507513-1307JPN006404

PATIENT
  Sex: Female

DRUGS (3)
  1. EMEND [Suspect]
     Indication: PROPHYLAXIS OF NAUSEA AND VOMITING
     Route: 048
  2. DEXAMETHASONE SODIUM PHOSPHATE [Concomitant]
  3. DEXAMETHASONE [Concomitant]

REACTIONS (1)
  - Pneumocystis jirovecii pneumonia [Recovered/Resolved]
